FAERS Safety Report 9318585 (Version 3)
Quarter: 2013Q3

REPORT INFORMATION
  Report Type: Spontaneous
  Country: ZA (occurrence: ZA)
  Receive Date: 20130530
  Receipt Date: 20130919
  Transmission Date: 20140515
  Serious: Yes (Other)
  Sender: FDA-Public Use
  Company Number: ZA-ELI_LILLY_AND_COMPANY-ZA201211001238

PATIENT
  Age: 38 Year
  Sex: Female
  Weight: 76 kg

DRUGS (3)
  1. HUMALOG 25% LISPRO, 75% NPL [Suspect]
     Indication: GESTATIONAL DIABETES
     Dosage: 16 IU, EACH EVENING
     Route: 058
     Dates: start: 201209, end: 201211
  2. HUMALOG 25% LISPRO, 75% NPL [Suspect]
     Dosage: 19 IU, EACH MORNING
     Route: 058
     Dates: start: 201209, end: 201211
  3. HUMALOG 25% LISPRO, 75% NPL [Suspect]
     Dosage: 15 IU, BID
     Route: 058
     Dates: start: 201211

REACTIONS (7)
  - Pregnancy with advanced maternal age [Recovered/Resolved]
  - Exposure during pregnancy [Recovered/Resolved]
  - Exposure during breast feeding [Recovered/Resolved]
  - Blood glucose increased [Recovered/Resolved]
  - Stress [Unknown]
  - Blood pressure increased [Recovered/Resolved]
  - Local swelling [Recovered/Resolved]
